FAERS Safety Report 4919864-8 (Version None)
Quarter: 2006Q1

REPORT INFORMATION
  Report Type: 
  Country: None (occurrence: None)
  Receive Date: 20060216
  Receipt Date: 20060206
  Transmission Date: 20060701
  Serious: Yes (Hospitalization)
  Sender: FDA-Public Use
  Company Number: GXKR2006GB00851

PATIENT
  Age: 54 Year
  Sex: Female

DRUGS (2)
  1. CITALOPRAM HYDROBROMIDE [Suspect]
     Dosage: 14-30 TABLETS OVERDOSE, ORAL
     Route: 048
     Dates: start: 20020601
  2. PREMPAK-C (ESTROGENS CONJUGATED, LEVONORGESTREL) [Concomitant]

REACTIONS (4)
  - ALCOHOL USE [None]
  - ANGLE CLOSURE GLAUCOMA [None]
  - INTENTIONAL OVERDOSE [None]
  - RETINAL HAEMORRHAGE [None]
